FAERS Safety Report 12192485 (Version 2)
Quarter: 2016Q2

REPORT INFORMATION
  Report Type: Spontaneous
  Country: US (occurrence: US)
  Receive Date: 20160318
  Receipt Date: 20160407
  Transmission Date: 20160815
  Serious: Yes (Other)
  Sender: FDA-Public Use
  Company Number: US-ASTRAZENECA-2013SE89231

PATIENT
  Age: 18941 Day
  Sex: Male
  Weight: 104.3 kg

DRUGS (37)
  1. PERCOCET/ROXICET/ENDOCET [Concomitant]
     Dosage: 325/5 P PRN  5 MG-325 MG TAB I TWICE A DAY
  2. LIPITOR [Concomitant]
     Active Substance: ATORVASTATIN CALCIUM
     Route: 048
     Dates: start: 20121029
  3. CARDURA [Concomitant]
     Active Substance: DOXAZOSIN MESYLATE
     Route: 048
     Dates: start: 20130122
  4. PRISTIQ EXTENDED-RELEASE [Concomitant]
     Active Substance: DESVENLAFAXINE SUCCINATE
     Dates: start: 20141124
  5. VITAMIN D [Concomitant]
     Active Substance: CHOLECALCIFEROL
  6. ZOCOR [Concomitant]
     Active Substance: SIMVASTATIN
  7. BYETTA [Suspect]
     Active Substance: EXENATIDE
     Indication: TYPE 2 DIABETES MELLITUS
     Dosage: 5 MCG/0.02 ML PER DOSE SUB-Q PEN INJECTION TWICE A DAY REPLACES LANTUS, REGULAR
     Route: 065
     Dates: start: 20090707, end: 201005
  8. BENICAR HCT [Concomitant]
     Active Substance: HYDROCHLOROTHIAZIDE\OLMESARTAN MEDOXOMIL
  9. SYNTHROID/LEVOTHROID [Concomitant]
     Route: 048
     Dates: start: 20121029
  10. ZESTRIL/PRINIVIL [Concomitant]
     Route: 048
     Dates: start: 20121101
  11. BENADRYL [Concomitant]
     Active Substance: DIPHENHYDRAMINE HYDROCHLORIDE
     Dates: start: 20121029
  12. GLUMETZA [Concomitant]
     Active Substance: METFORMIN HYDROCHLORIDE
     Route: 048
     Dates: start: 20121101
  13. PEPCID [Concomitant]
     Active Substance: FAMOTIDINE
     Dates: start: 20121031
  14. AUGMENTIN [Concomitant]
     Active Substance: AMOXICILLIN\CLAVULANATE POTASSIUM
     Dates: start: 20121029
  15. INVOKANA [Concomitant]
     Active Substance: CANAGLIFLOZIN
     Dates: start: 20140711
  16. NICOTINE. [Concomitant]
     Active Substance: NICOTINE
     Dosage: 2 1 MGL24HR- 1 4MG/24HR-7MG/24HR TRANSDERM. PATCH 1 ONCE A DAY
     Route: 062
  17. DELTASONE [Concomitant]
     Active Substance: PREDNISONE
     Route: 048
     Dates: start: 20121101
  18. CHANTIX [Concomitant]
     Active Substance: VARENICLINE TARTRATE
     Dates: start: 20121029
  19. CLARITIN [Concomitant]
     Active Substance: LORATADINE
     Dates: start: 20121031
  20. MEDROL [Concomitant]
     Active Substance: METHYLPREDNISOLONE
     Dates: start: 20121029
  21. CLEOCIN [Concomitant]
     Active Substance: CLINDAMYCIN PHOSPHATE
     Dates: start: 20121127
  22. PROTONIX [Concomitant]
     Active Substance: PANTOPRAZOLE SODIUM
     Dates: start: 20121127
  23. EFFEXOR [Concomitant]
     Active Substance: VENLAFAXINE HYDROCHLORIDE
     Dates: start: 20130122
  24. ASPIRIN. [Concomitant]
     Active Substance: ASPIRIN
  25. IMDUR [Concomitant]
     Active Substance: ISOSORBIDE MONONITRATE
     Dates: start: 20121029
  26. NORVASC [Concomitant]
     Active Substance: AMLODIPINE BESYLATE
     Dates: start: 20121029
  27. RANEXA [Concomitant]
     Active Substance: RANOLAZINE
  28. VITAMIN B12 [Concomitant]
     Active Substance: CYANOCOBALAMIN
  29. DEXILANT/KAPIDEX [Concomitant]
     Route: 048
     Dates: start: 20130122
  30. ANTIVERT [Concomitant]
     Active Substance: MECLIZINE HYDROCHLORIDE
     Dates: start: 20141124
  31. PRANDIN [Concomitant]
     Active Substance: REPAGLINIDE
  32. COREG [Concomitant]
     Active Substance: CARVEDILOL
     Route: 048
     Dates: start: 20121029
  33. ZYRTEC [Concomitant]
     Active Substance: CETIRIZINE HYDROCHLORIDE
     Dates: start: 20121029
  34. VALIUM [Concomitant]
     Active Substance: DIAZEPAM
     Dates: start: 20141124
  35. DEPLIN [Concomitant]
     Active Substance: LEVOMEFOLATE CALCIUM
  36. VICTOZA [Concomitant]
     Active Substance: LIRAGLUTIDE
     Dosage: 0.6 MGIO.1I ML (18 MG/3 ML) SUB-Q PEN INJECTOR 1.2 ONCE A DAY FOR 90 DAYS
     Route: 058
  37. TESTOSTERONE CIPIONATE [Concomitant]
     Active Substance: TESTOSTERONE

REACTIONS (4)
  - Papillary thyroid cancer [Unknown]
  - Hypothyroidism [Unknown]
  - Thyroid cancer [Unknown]
  - Goitre [Unknown]

NARRATIVE: CASE EVENT DATE: 20110317
